FAERS Safety Report 17952720 (Version 2)
Quarter: 2020Q3

REPORT INFORMATION
  Report Type: Spontaneous
  Country: US (occurrence: US)
  Receive Date: 20200626
  Receipt Date: 20200701
  Transmission Date: 20201103
  Serious: Yes (Hospitalization, Other)
  Sender: FDA-Public Use
  Company Number: US-009507513-2006USA006273

PATIENT
  Age: 59 Year
  Sex: Male
  Weight: 65 kg

DRUGS (5)
  1. VANCOMYCIN [Concomitant]
     Active Substance: VANCOMYCIN
     Dosage: 500 MILLIGRAM, ONCE
     Route: 042
  2. BUPROPION. [Concomitant]
     Active Substance: BUPROPION
     Dosage: UNK
  3. VANCOMYCIN [Concomitant]
     Active Substance: VANCOMYCIN
     Indication: EMPYEMA
     Dosage: 1250 MG, ONCE
     Route: 042
  4. INVANZ [Suspect]
     Active Substance: ERTAPENEM SODIUM
     Dosage: 1000 MG, QD
     Route: 042
  5. INVANZ [Suspect]
     Active Substance: ERTAPENEM SODIUM
     Indication: EMPYEMA
     Dosage: 500 MILLIGRAM, Q24H
     Route: 042

REACTIONS (2)
  - Toxic encephalopathy [Recovered/Resolved]
  - Product use in unapproved indication [Unknown]
